FAERS Safety Report 25254236 (Version 1)
Quarter: 2025Q2

REPORT INFORMATION
  Report Type: Report from Study
  Country: NL (occurrence: NL)
  Receive Date: 20250430
  Receipt Date: 20250430
  Transmission Date: 20250716
  Serious: Yes (Hospitalization)
  Sender: BIOVITRUM
  Company Number: NL-AstraZeneca-CH-00856496A

PATIENT
  Age: 32 Week
  Sex: Male
  Weight: 8.27 kg

DRUGS (2)
  1. SYNAGIS [Suspect]
     Active Substance: PALIVIZUMAB
     Indication: Premature baby
     Route: 030
     Dates: start: 20240911
  2. COSMETICS [Concomitant]
     Active Substance: COSMETICS
     Indication: Premature baby
     Route: 065

REACTIONS (3)
  - Illness [Recovered/Resolved]
  - Coronavirus infection [Recovered/Resolved]
  - Weight decreased [Unknown]
